FAERS Safety Report 24384525 (Version 1)
Quarter: 2024Q4

REPORT INFORMATION
  Report Type: Spontaneous
  Country: FR (occurrence: FR)
  Receive Date: 20241001
  Receipt Date: 20241001
  Transmission Date: 20250115
  Serious: Yes (Other)
  Sender: TEVA
  Company Number: None

PATIENT
  Age: 74 Year
  Sex: Female
  Weight: 63.5 kg

DRUGS (3)
  1. PACLITAXEL [Suspect]
     Active Substance: PACLITAXEL
     Indication: Triple negative breast cancer
     Route: 042
     Dates: start: 20240215, end: 20240426
  2. KEYTRUDA [Suspect]
     Active Substance: PEMBROLIZUMAB
     Indication: Triple negative breast cancer
     Dosage: PEMBROLIZUMAB AAP (KEYTRUDA) 200MG
     Route: 042
     Dates: start: 20240215
  3. CARBOPLATIN [Concomitant]
     Active Substance: CARBOPLATIN
     Indication: Triple negative breast cancer
     Dosage: CARBOPLATINE ACCORD
     Route: 042
     Dates: start: 20240215, end: 20240510

REACTIONS (2)
  - Neuropathy peripheral [Recovering/Resolving]
  - Asthenia [Recovering/Resolving]

NARRATIVE: CASE EVENT DATE: 20240403
